FAERS Safety Report 14985574 (Version 2)
Quarter: 2018Q2

REPORT INFORMATION
  Report Type: Spontaneous
  Country: US (occurrence: US)
  Receive Date: 20180607
  Receipt Date: 20180618
  Transmission Date: 20180711
  Serious: Yes (Hospitalization)
  Sender: FDA-Public Use
  Company Number: US-TEVA-2018-US-900695

PATIENT
  Age: 4 Year
  Sex: Female
  Weight: 22 kg

DRUGS (1)
  1. THEOPHYLLINE [Suspect]
     Active Substance: THEOPHYLLINE ANHYDROUS
     Dosage: 200MG SUSTAINED-RELEASE TABLETS
     Route: 048

REACTIONS (13)
  - Vomiting [Unknown]
  - Respiratory acidosis [Unknown]
  - Sinus tachycardia [Recovered/Resolved]
  - Diarrhoea [Unknown]
  - Partial seizures [Recovered/Resolved]
  - Hyperglycaemia [Unknown]
  - Unresponsive to stimuli [Recovered/Resolved]
  - Electrocardiogram QT prolonged [Recovered/Resolved]
  - Hypokalaemia [Unknown]
  - Respiratory failure [Recovered/Resolved]
  - Metabolic acidosis [Unknown]
  - Toxicity to various agents [Recovering/Resolving]
  - Electrocardiogram QRS complex prolonged [Recovered/Resolved]
